FAERS Safety Report 23865618 (Version 3)
Quarter: 2024Q3

REPORT INFORMATION
  Report Type: Spontaneous
  Country: US (occurrence: US)
  Receive Date: 20240517
  Receipt Date: 20240920
  Transmission Date: 20241016
  Serious: Yes (Hospitalization, Other)
  Sender: CATALYST PHARMA
  Company Number: US-CATALYST PHARMACEUTICALS, INC-US-CATA-24-00180

PATIENT
  Sex: Female
  Weight: 69.841 kg

DRUGS (27)
  1. FIRDAPSE [Suspect]
     Active Substance: AMIFAMPRIDINE PHOSPHATE
     Indication: Myasthenic syndrome
     Dosage: 10 MG THREE TIMES DAILY
     Route: 048
     Dates: start: 20240220, end: 2024
  2. FIRDAPSE [Suspect]
     Active Substance: AMIFAMPRIDINE PHOSPHATE
     Dosage: TWO TABLETS THREE TIMES DAILY
     Route: 048
     Dates: start: 202405, end: 2024
  3. FIRDAPSE [Suspect]
     Active Substance: AMIFAMPRIDINE PHOSPHATE
     Dosage: 1 TABLET THREE TIMES DAILY
     Route: 048
     Dates: start: 2024, end: 2024
  4. FIRDAPSE [Suspect]
     Active Substance: AMIFAMPRIDINE PHOSPHATE
     Dosage: 2 TABLET THREE TIMES DAILY
     Route: 048
     Dates: start: 2024
  5. AMLODIPINE [Concomitant]
     Active Substance: AMLODIPINE BESYLATE
     Indication: Hypertension
     Dosage: 5 MG DAILY
     Route: 065
  6. ASPIRIN [Concomitant]
     Active Substance: ASPIRIN
     Indication: Thrombosis prophylaxis
     Dosage: 81 MG DAILY
     Route: 065
  7. B12 [Concomitant]
     Indication: Hypovitaminosis
     Dosage: 1000 MCG EVERY MONTH
     Route: 065
  8. BUPROPION HYDROCHLORIDE [Concomitant]
     Active Substance: BUPROPION HYDROCHLORIDE
     Indication: Depression
     Dosage: 300 MG 1 DAILY
     Route: 065
  9. CALCIUM\VITAMIN D [Concomitant]
     Active Substance: CALCIUM\VITAMIN D
     Indication: Osteoporosis
     Dosage: 6 TABS PER WEEK
     Route: 065
  10. FIORICET [Concomitant]
     Active Substance: ACETAMINOPHEN\BUTALBITAL\CAFFEINE
     Indication: Headache
     Dosage: 50-300-40 MG IF NEEDED
     Route: 065
  11. FOLIC ACID [Concomitant]
     Active Substance: FOLIC ACID
     Indication: Hypovitaminosis
     Dosage: 1 MG SIX DAYS PER WEEK
     Route: 065
  12. GEMTESA [Concomitant]
     Active Substance: VIBEGRON
     Indication: Hypertonic bladder
     Dosage: 75 MG DAILY
     Route: 065
  13. MESTINON [Concomitant]
     Active Substance: PYRIDOSTIGMINE BROMIDE
     Indication: Myasthenic syndrome
     Dosage: 90 MG FOUR TIMES DAILY
     Route: 065
  14. METHOTREXATE SODIUM [Concomitant]
     Active Substance: METHOTREXATE SODIUM
     Indication: Myasthenic syndrome
     Dosage: 50 MG WEEKLY
     Route: 065
  15. METHOTREXATE SODIUM [Concomitant]
     Active Substance: METHOTREXATE SODIUM
     Dosage: 15 MG WEEKLY
     Route: 065
  16. ADULT MULTIVITAMIN [Concomitant]
     Indication: Hypovitaminosis
     Dosage: 1 TABLET 6 TIMES PER WEEK
     Route: 065
  17. MURO 128 [Concomitant]
     Active Substance: SODIUM CHLORIDE
     Indication: Dry eye
     Dosage: 1 DROP THREE TIMES DAILY
     Route: 047
  18. MURO 128 [Concomitant]
     Active Substance: SODIUM CHLORIDE
     Indication: Dry eye
     Dosage: 1 RIBBON AT BEDTIME
     Route: 047
  19. ZOFRAN [Concomitant]
     Active Substance: ONDANSETRON HYDROCHLORIDE
     Indication: Nausea
     Dosage: 8 MG IF NEEDED
     Route: 065
  20. PREDNISONE [Concomitant]
     Active Substance: PREDNISONE
     Indication: Myasthenic syndrome
     Dosage: 10 MG EVERY OTHER DAY
     Route: 065
  21. PROBIOTICS NOS [Concomitant]
     Active Substance: PROBIOTICS NOS
     Indication: Gastrointestinal disorder
     Dosage: 1 DAILY
     Route: 065
  22. PROLIA [Concomitant]
     Active Substance: DENOSUMAB
     Indication: Osteoporosis
     Dosage: 60MG/ML EVERY 6 MONTHS
     Route: 058
  23. RESTASIS [Concomitant]
     Active Substance: CYCLOSPORINE
     Indication: Dry eye
     Dosage: ONE DROP TWICE DAILY
     Route: 065
  24. VENLAFAXINE HYDROCHLORIDE [Concomitant]
     Active Substance: VENLAFAXINE HYDROCHLORIDE
     Indication: Depression
     Dosage: 150 MG DAILY
     Route: 065
  25. VESICARE [Concomitant]
     Active Substance: SOLIFENACIN SUCCINATE
     Indication: Hypertonic bladder
     Dosage: 10 MG DAILY
     Route: 065
  26. METHOTREXATE [Concomitant]
     Active Substance: METHOTREXATE
     Indication: Product used for unknown indication
     Dosage: 15 MG WEEKLY
     Route: 065
  27. PEPCID [Concomitant]
     Active Substance: FAMOTIDINE
     Indication: Gastrointestinal disorder prophylaxis
     Dosage: UNKNOWN
     Route: 065

REACTIONS (15)
  - Gastrointestinal pain [Recovering/Resolving]
  - Intestinal obstruction [Recovered/Resolved]
  - Corneal transplant [Recovered/Resolved]
  - Weight increased [Not Recovered/Not Resolved]
  - Arthralgia [Not Recovered/Not Resolved]
  - Hypoaesthesia [Recovered/Resolved]
  - Gastrooesophageal reflux disease [Unknown]
  - Abdominal pain upper [Unknown]
  - Diarrhoea [Not Recovered/Not Resolved]
  - Insomnia [Not Recovered/Not Resolved]
  - Paraesthesia [Not Recovered/Not Resolved]
  - Pain in extremity [Not Recovered/Not Resolved]
  - Dizziness [Not Recovered/Not Resolved]
  - Abdominal discomfort [Recovering/Resolving]
  - Drug ineffective [Unknown]

NARRATIVE: CASE EVENT DATE: 20240101
